FAERS Safety Report 5104782-5 (Version None)
Quarter: 2006Q3

REPORT INFORMATION
  Report Type: 
  Country: None (occurrence: None)
  Receive Date: 20060914
  Receipt Date: 20060905
  Transmission Date: 20061208
  Serious: Yes (Death)
  Sender: FDA-Public Use
  Company Number: US-JNJFOC-20060902688

PATIENT
  Age: 54 Year
  Sex: Male

DRUGS (4)
  1. CYCLOBENZAPRINE HCL [Suspect]
     Indication: SUICIDE ATTEMPT
     Route: 048
  2. TIAGABINE HCL [Suspect]
     Indication: SUICIDE ATTEMPT
     Route: 048
  3. ESZOPICLONE [Suspect]
     Indication: SUICIDE ATTEMPT
     Route: 048
  4. CARBON MONOXIDE [Suspect]
     Indication: SUICIDE ATTEMPT
     Route: 055

REACTIONS (1)
  - COMPLETED SUICIDE [None]
